FAERS Safety Report 6196909-1 (Version None)
Quarter: 2009Q2

REPORT INFORMATION
  Report Type: 
  Country: None (occurrence: None)
  Receive Date: 20090520
  Receipt Date: 20090508
  Transmission Date: 20091009
  Serious: Yes (Hospitalization)
  Sender: FDA-Public Use
  Company Number: US-WYE-H07965009

PATIENT
  Sex: Female
  Weight: 57.66 kg

DRUGS (5)
  1. EFFEXOR [Suspect]
     Indication: MAJOR DEPRESSION
     Route: 048
     Dates: start: 20081107, end: 20081120
  2. EFFEXOR [Suspect]
     Dates: start: 20081121, end: 20081229
  3. EFFEXOR [Suspect]
     Dosage: ^GRADUAL REDUCTION IN DOSE^
     Dates: start: 20081230
  4. ETHANOL [Suspect]
     Dosage: CONSUMED ^HEAVY AMOUNTS OF ALCOHOL^
     Route: 048
     Dates: start: 20081201
  5. TYLENOL [Concomitant]
     Dosage: UNSPECIFIED
     Dates: start: 19900601

REACTIONS (1)
  - KETOACIDOSIS [None]
